FAERS Safety Report 13375651 (Version 1)
Quarter: 2017Q1

REPORT INFORMATION
  Report Type: Report from Study
  Country: BR (occurrence: BR)
  Receive Date: 20170328
  Receipt Date: 20170328
  Transmission Date: 20170429
  Serious: Yes (Other)
  Sender: FDA-Public Use
  Company Number: BR-ROCHE-1911715

PATIENT
  Sex: Female
  Weight: 86 kg

DRUGS (8)
  1. METHOTREXATE. [Concomitant]
     Active Substance: METHOTREXATE
  2. PREDNISONE. [Concomitant]
     Active Substance: PREDNISONE
  3. FOLIC ACID. [Concomitant]
     Active Substance: FOLIC ACID
  4. ONDANSETRON [Concomitant]
     Active Substance: ONDANSETRON
  5. PROFENID [Concomitant]
     Active Substance: KETOPROFEN
  6. ACTEMRA [Suspect]
     Active Substance: TOCILIZUMAB
     Indication: RHEUMATOID ARTHRITIS
     Route: 042
     Dates: start: 20160401, end: 20170201
  7. OMEPRAZOLE. [Concomitant]
     Active Substance: OMEPRAZOLE
  8. DIPYRONE [Concomitant]
     Active Substance: DIPYRONE

REACTIONS (5)
  - Blood cholesterol increased [Unknown]
  - Hypertension [Unknown]
  - Headache [Unknown]
  - Glucose tolerance impaired [Unknown]
  - Chronic obstructive pulmonary disease [Unknown]
